FAERS Safety Report 6068978-0 (Version None)
Quarter: 2009Q1

REPORT INFORMATION
  Report Type: 
  Country: None (occurrence: None)
  Receive Date: 20090206
  Receipt Date: 20090129
  Transmission Date: 20090719
  Serious: Yes (Other)
  Sender: FDA-Public Use
  Company Number: GB-MERCK-0901GBR00095

PATIENT
  Age: 55 Year
  Sex: Male
  Weight: 109 kg

DRUGS (5)
  1. FOSAMAX [Suspect]
     Route: 048
     Dates: start: 20081226, end: 20090110
  2. AZATHIOPRINE [Concomitant]
     Indication: POLYMYOSITIS
     Route: 047
  3. NAPROXEN [Concomitant]
     Indication: ARTHRITIS
     Route: 048
     Dates: start: 20080930
  4. ORLISTAT [Concomitant]
     Indication: WEIGHT DECREASED
     Route: 048
     Dates: start: 20080201
  5. PREDNISOLONE [Concomitant]
     Indication: ARTHRITIS
     Route: 048

REACTIONS (1)
  - RECTAL HAEMORRHAGE [None]
